FAERS Safety Report 7716272-1 (Version None)
Quarter: 2011Q3

REPORT INFORMATION
  Report Type: 
  Country: None (occurrence: None)
  Receive Date: 20110829
  Receipt Date: 20110818
  Transmission Date: 20111222
  Serious: Yes (Other)
  Sender: FDA-Public Use
  Company Number: CA-JNJFOC-20110711166

PATIENT
  Sex: Female
  Weight: 94 kg

DRUGS (7)
  1. CLARITIN [Concomitant]
     Route: 065
  2. INFLIXIMAB, RECOMBINANT [Suspect]
     Indication: CROHN'S DISEASE
     Route: 042
     Dates: start: 20100601
  3. ASACOL [Concomitant]
     Route: 065
  4. PERINDOPRIL ERBUMINE [Concomitant]
     Route: 065
  5. PREDNISONE [Concomitant]
     Route: 065
  6. PANTOPRAZOLE SODIUM [Concomitant]
     Route: 065
  7. INFLIXIMAB, RECOMBINANT [Suspect]
     Indication: ANKYLOSING SPONDYLITIS
     Route: 042
     Dates: start: 20100601

REACTIONS (3)
  - TOOTH INFECTION [None]
  - UTERINE PAIN [None]
  - VAGINAL HAEMORRHAGE [None]
